FAERS Safety Report 6089595-2 (Version None)
Quarter: 2009Q1

REPORT INFORMATION
  Report Type: 
  Country: None (occurrence: None)
  Receive Date: 20090224
  Receipt Date: 20090210
  Transmission Date: 20090719
  Serious: Yes (Hospitalization)
  Sender: FDA-Public Use
  Company Number: PHHY2009FR04930

PATIENT
  Age: 71 Year
  Sex: Female

DRUGS (8)
  1. VOLTARENE [Suspect]
     Dosage: UNK
     Route: 048
     Dates: end: 20090102
  2. INIPOMP [Suspect]
     Dosage: UNK
     Route: 048
     Dates: end: 20090102
  3. ALDALIX [Suspect]
     Dosage: 50 MG/20 MG
     Route: 048
     Dates: end: 20090104
  4. DOMPERIDONE [Suspect]
     Dosage: UNK
     Dates: end: 20090104
  5. MONO-TILDIEM [Suspect]
     Dosage: UNK
     Route: 048
     Dates: start: 20081221, end: 20081229
  6. PRAVASTATIN [Concomitant]
     Dosage: UNK
     Dates: end: 20090104
  7. BETAHISTINE [Concomitant]
  8. STABLON [Concomitant]

REACTIONS (11)
  - BASAL CELL CARCINOMA [None]
  - DERMATITIS EXFOLIATIVE [None]
  - EOSINOPHIL COUNT INCREASED [None]
  - HYPERKERATOSIS [None]
  - INSOMNIA [None]
  - PRURITUS [None]
  - RASH ERYTHEMATOUS [None]
  - RASH MACULO-PAPULAR [None]
  - SCAR EXCISION [None]
  - SELF-MEDICATION [None]
  - TREATMENT NONCOMPLIANCE [None]
